FAERS Safety Report 7031103-3 (Version None)
Quarter: 2010Q4

REPORT INFORMATION
  Report Type: 
  Country: None (occurrence: None)
  Receive Date: 20101006
  Receipt Date: 20100929
  Transmission Date: 20110411
  Serious: Yes (Death, Hospitalization)
  Sender: FDA-Public Use
  Company Number: US-BAXTER-2010BH013714

PATIENT
  Age: 54 Year
  Sex: Female

DRUGS (1)
  1. DIANEAL [Suspect]
     Indication: PERITONEAL DIALYSIS
     Route: 033
     Dates: end: 20100610

REACTIONS (4)
  - AZOTAEMIA [None]
  - CALCIPHYLAXIS [None]
  - NAUSEA [None]
  - STOMACH MASS [None]
